FAERS Safety Report 9704524 (Version 1)
Quarter: 2013Q4

REPORT INFORMATION
  Report Type: Spontaneous
  Country: US (occurrence: US)
  Receive Date: 20131122
  Receipt Date: 20131122
  Transmission Date: 20140711
  Serious: Yes (Hospitalization)
  Sender: FDA-Public Use
  Company Number: US-ROCHE-1306904

PATIENT
  Age: 67 Year
  Sex: Female

DRUGS (3)
  1. BEVACIZUMAB [Suspect]
     Indication: OVARIAN CANCER
     Route: 042
  2. CARBOPLATIN [Concomitant]
     Indication: OVARIAN CANCER
  3. GEMCITABINE [Concomitant]
     Indication: OVARIAN CANCER

REACTIONS (6)
  - VIth nerve paralysis [Recovering/Resolving]
  - Mental status changes [Recovered/Resolved]
  - Dizziness [Unknown]
  - Gait disturbance [Unknown]
  - Nausea [Unknown]
  - Vomiting [Unknown]
